FAERS Safety Report 9801380 (Version 2)
Quarter: 2015Q1

REPORT INFORMATION
  Report Type: Spontaneous
  Country: US (occurrence: US)
  Receive Date: 20140107
  Receipt Date: 20150129
  Transmission Date: 20150721
  Serious: No
  Sender: FDA-Public Use
  Company Number: US-GLAXOSMITHKLINE-A1051930A

PATIENT

DRUGS (1)
  1. BENLYSTA [Suspect]
     Active Substance: BELIMUMAB
     Indication: SYSTEMIC LUPUS ERYTHEMATOSUS
     Dosage: EVERY 28 DAYS
     Route: 042
     Dates: start: 20130605

REACTIONS (3)
  - Arthritis [Not Recovered/Not Resolved]
  - Pain [Unknown]
  - Dysgraphia [Not Recovered/Not Resolved]
